FAERS Safety Report 8815547 (Version 3)
Quarter: 2013Q1

REPORT INFORMATION
  Report Type: Spontaneous
  Country: US (occurrence: US)
  Receive Date: 20120928
  Receipt Date: 20130213
  Transmission Date: 20140127
  Serious: Yes (Hospitalization, Disabling, Other)
  Sender: FDA-Public Use
  Company Number: US-009507513-1109USA02546

PATIENT
  Sex: Male
  Weight: 63.5 kg

DRUGS (21)
  1. FOSAMAX [Suspect]
     Indication: OSTEOPOROSIS
     Dosage: 70 MG, UNK
     Route: 048
     Dates: start: 200009, end: 200805
  2. FOSAMAX [Suspect]
     Dosage: 1 MG, QW
     Route: 048
     Dates: start: 20060424
  3. FOSAMAX [Suspect]
     Indication: OSTEOPOROSIS
     Dosage: 70 MG, UNK
     Route: 048
     Dates: start: 200806, end: 200909
  4. CELEBREX [Concomitant]
     Indication: PAIN
     Dosage: 200 MG, QD
     Route: 048
     Dates: start: 20000101, end: 20100301
  5. DILANTIN [Concomitant]
     Indication: CONVULSION
     Dosage: 100-200
     Route: 048
     Dates: start: 19990101
  6. HYDROCODONE [Concomitant]
     Indication: PAIN
     Dates: start: 2001
  7. LORCET [Concomitant]
     Indication: PAIN
  8. NEURONTIN [Concomitant]
     Indication: EPILEPSY
     Dosage: 800 MG, UNK
  9. SOMA [Concomitant]
     Indication: PAIN
     Dosage: 350 MG, TID
     Route: 048
  10. KLONOPIN [Concomitant]
     Indication: ANXIETY
     Dosage: 0.5 MG, QD
     Route: 048
     Dates: start: 19990101
  11. VERAPAMIL [Concomitant]
     Dosage: 240-360
     Route: 048
  12. AMOXICILLIN [Concomitant]
     Dosage: 200-500
  13. PEN-VEE K [Concomitant]
  14. PHENYTOIN [Concomitant]
     Dosage: 200 MG, UNK
  15. FOSAMAX [Suspect]
     Indication: OSTEOPOROSIS
     Dosage: 70 MG, UNK
     Route: 048
     Dates: start: 20080722, end: 20090817
  16. ATIVAN [Concomitant]
     Indication: ANXIETY
  17. ZYPREXA [Concomitant]
     Indication: ANXIETY
     Dates: start: 200802, end: 200805
  18. EFFEXOR [Concomitant]
     Indication: CONVULSION
  19. TOPAMAX [Concomitant]
     Indication: CONVULSION
  20. VICODIN [Concomitant]
     Indication: PAIN
     Dates: end: 201106
  21. METOPROLOL [Concomitant]
     Indication: HYPERTENSION
     Dates: start: 200601

REACTIONS (79)
  - Osteomyelitis [Unknown]
  - Osteonecrosis of jaw [Not Recovered/Not Resolved]
  - Jaw disorder [Not Recovered/Not Resolved]
  - Neck injury [Not Recovered/Not Resolved]
  - Dental caries [Unknown]
  - Tooth disorder [Unknown]
  - Tooth disorder [Unknown]
  - Tooth disorder [Unknown]
  - Device related infection [Unknown]
  - Periodontal disease [Unknown]
  - Fistula discharge [Unknown]
  - Angiopathy [Unknown]
  - Upper limb fracture [Unknown]
  - Ankle fracture [Unknown]
  - Wrist fracture [Unknown]
  - Cerebrovascular accident [Unknown]
  - Coordination abnormal [Unknown]
  - Coordination abnormal [Unknown]
  - Migraine [Unknown]
  - Bone loss [Unknown]
  - Diabetes mellitus [Unknown]
  - Cerebrovascular accident [Unknown]
  - Gastritis [Unknown]
  - Hiatus hernia [Unknown]
  - Diverticulum [Unknown]
  - Haemorrhoids [Unknown]
  - Major depression [Unknown]
  - Alcoholism [Not Recovered/Not Resolved]
  - Ketoacidosis [Recovered/Resolved]
  - Thermal burn [Recovering/Resolving]
  - Drug level increased [Unknown]
  - Fall [Unknown]
  - Subdural haematoma [Unknown]
  - Left atrial dilatation [Unknown]
  - Ventricular hypertrophy [Unknown]
  - Fall [Unknown]
  - Alcohol withdrawal syndrome [Unknown]
  - Fall [Unknown]
  - Vision blurred [Unknown]
  - Local swelling [Unknown]
  - Appetite disorder [Unknown]
  - Nocturia [Unknown]
  - Balance disorder [Unknown]
  - Back pain [Not Recovered/Not Resolved]
  - Diarrhoea [Not Recovered/Not Resolved]
  - Intervertebral disc protrusion [Unknown]
  - Compression fracture [Unknown]
  - Deep vein thrombosis [Unknown]
  - Depression [Unknown]
  - Limb deformity [Unknown]
  - Bone lesion [Unknown]
  - Foot deformity [Unknown]
  - Fall [Unknown]
  - Joint injury [Unknown]
  - Agitation [Unknown]
  - Transient ischaemic attack [Unknown]
  - Inappropriate schedule of drug administration [Unknown]
  - Arthritis [Unknown]
  - Myelomalacia [Unknown]
  - Intervertebral disc degeneration [Unknown]
  - Kyphosis [Unknown]
  - Dementia [Unknown]
  - Fall [Unknown]
  - Drug ineffective [Unknown]
  - Pathological fracture [Unknown]
  - Chronic obstructive pulmonary disease [Not Recovered/Not Resolved]
  - Pelvic fracture [Unknown]
  - Lipids increased [Unknown]
  - Rib fracture [Unknown]
  - Sleep disorder [Unknown]
  - Fatigue [Not Recovered/Not Resolved]
  - Increased appetite [Unknown]
  - Prostatomegaly [Unknown]
  - Tooth extraction [Unknown]
  - Radiculopathy [Not Recovered/Not Resolved]
  - Clavicle fracture [Unknown]
  - Bone lesion [Unknown]
  - Biopsy bone [Unknown]
  - Tooth extraction [Unknown]
